FAERS Safety Report 4639570-7 (Version None)
Quarter: 2005Q2

REPORT INFORMATION
  Report Type: 
  Country: None (occurrence: None)
  Receive Date: 20050328
  Receipt Date: 20050211
  Transmission Date: 20051028
  Serious: No
  Sender: FDA-Public Use
  Company Number: USA050290699

PATIENT
  Sex: Female

DRUGS (7)
  1. STRATTERA [Suspect]
     Indication: ATTENTION DEFICIT/HYPERACTIVITY DISORDER
     Dosage: 40 MG DAY
     Dates: start: 20050210
  2. PROZAC [Suspect]
     Dosage: 40 MG DAY
     Dates: start: 19940101
  3. XANAX (ALPRAZOLAM DUM) [Concomitant]
  4. PREVACID [Concomitant]
  5. ZYRTEC [Concomitant]
  6. TALWIN [Concomitant]
  7. FLUOXETINE [Concomitant]

REACTIONS (3)
  - FEELING JITTERY [None]
  - PALPITATIONS [None]
  - WEIGHT DECREASED [None]
